FAERS Safety Report 5900981-0 (Version None)
Quarter: 2008Q3

REPORT INFORMATION
  Report Type: 
  Country: None (occurrence: None)
  Receive Date: 20080929
  Receipt Date: 20080828
  Transmission Date: 20090109
  Serious: No
  Sender: FDA-Public Use
  Company Number: US-BAYER-200813575BCC

PATIENT
  Age: 82 Year
  Sex: Female
  Weight: 64 kg

DRUGS (6)
  1. ALEVE [Suspect]
     Indication: ANALGESIA
     Dosage: TOTAL DAILY DOSE: 220 MG  UNIT DOSE: 220 MG
     Route: 048
     Dates: start: 20080827, end: 20080828
  2. IBUPROFEN [Concomitant]
  3. EXCEDRIN (MIGRAINE) [Concomitant]
  4. PRILOSEC [Concomitant]
  5. CLARITIN [Concomitant]
  6. VITAMINS NOS [Concomitant]

REACTIONS (1)
  - PRURITUS [None]
